FAERS Safety Report 8311163-X (Version None)
Quarter: 2012Q2

REPORT INFORMATION
  Report Type: 
  Country: None (occurrence: None)
  Receive Date: 20120423
  Receipt Date: 20120410
  Transmission Date: 20120825
  Serious: Yes (Other)
  Sender: FDA-Public Use
  Company Number: 2012SP018207

PATIENT
  Sex: Female

DRUGS (6)
  1. PEG-INTRON [Suspect]
     Indication: HEPATITIS C
     Dosage: 100 MCG;QW
     Dates: start: 20120319
  2. ACAMPROSATE [Concomitant]
  3. REBETOL [Suspect]
     Indication: HEPATITIS C
     Dosage: 1200 MG;QD
     Dates: start: 20120319
  4. ESCITALOPRAM [Concomitant]
  5. PANTOPRAZOLE [Concomitant]
  6. PROPRANOLOL [Concomitant]

REACTIONS (1)
  - BREAST NEOPLASM [None]
